FAERS Safety Report 6069713-2 (Version None)
Quarter: 2009Q1

REPORT INFORMATION
  Report Type: 
  Country: None (occurrence: None)
  Receive Date: 20090209
  Receipt Date: 20090202
  Transmission Date: 20090719
  Serious: Yes (Hospitalization)
  Sender: FDA-Public Use
  Company Number: US-AMGEN-QUU329736

PATIENT
  Sex: Female
  Weight: 80.4 kg

DRUGS (7)
  1. ENBREL [Suspect]
     Indication: RHEUMATOID ARTHRITIS
     Route: 058
     Dates: start: 20060501
  2. METHOTREXATE [Concomitant]
     Route: 048
     Dates: start: 20080601
  3. IMURAN [Concomitant]
     Dates: start: 20030101
  4. SYNTHROID [Concomitant]
     Dates: start: 19610101
  5. NORVASC [Concomitant]
     Dates: start: 20040101
  6. COZAAR [Concomitant]
     Dates: start: 20070101
  7. LANTUS [Concomitant]
     Dates: start: 20050101

REACTIONS (2)
  - BENIGN NEOPLASM OF THYROID GLAND [None]
  - PSORIASIS [None]
